FAERS Safety Report 5596071-X (Version None)
Quarter: 2008Q1

REPORT INFORMATION
  Report Type: 
  Country: None (occurrence: None)
  Receive Date: 20080118
  Receipt Date: 20080111
  Transmission Date: 20080703
  Serious: Yes (Other)
  Sender: FDA-Public Use
  Company Number: GB-ROCHE-533703

PATIENT
  Age: 60 Year
  Sex: Male
  Weight: 131 kg

DRUGS (12)
  1. ORLISTAT [Suspect]
     Indication: OBESITY
     Route: 048
     Dates: start: 20070522
  2. TADALAFIL [Suspect]
     Indication: DRUG USE FOR UNKNOWN INDICATION
     Dosage: AS NECESSARY.
     Route: 065
  3. CLOPIDOGREL [Concomitant]
     Indication: ANTICOAGULANT THERAPY
     Route: 048
     Dates: start: 20050101
  4. PIOGLITAZONE [Concomitant]
     Route: 048
  5. SIMVASTATIN [Concomitant]
     Dosage: 20MG NOCTE
     Route: 048
  6. FOSINOPRIL SODIUM [Concomitant]
     Indication: HYPERTENSION
     Route: 048
  7. LEVEMIR [Concomitant]
     Dosage: DRUG NAME REPORTED AS LEVERMIR. 40 UNITS NOCTE
     Route: 058
  8. NOVORAPID [Concomitant]
     Route: 058
  9. HYDROXYZINE [Concomitant]
     Route: 048
  10. PANTOPRAZOLE SODIUM [Concomitant]
     Route: 048
  11. CETRABEN [Concomitant]
     Dosage: AS NEEDED.
  12. ACETAMINOPHEN [Concomitant]
     Dosage: WHEN REQUIRED.

REACTIONS (1)
  - THROAT CANCER [None]
